FAERS Safety Report 25073392 (Version 1)
Quarter: 2025Q1

REPORT INFORMATION
  Report Type: Report from Study
  Country: US (occurrence: US)
  Receive Date: 20250313
  Receipt Date: 20250313
  Transmission Date: 20250409
  Serious: Yes (Death, Other)
  Sender: INSMED
  Company Number: US-INSMED, INC.-2023-02099-US

PATIENT
  Age: 64 Year
  Sex: Female

DRUGS (6)
  1. ARIKAYCE [Suspect]
     Active Substance: AMIKACIN
     Indication: Mycobacterium avium complex infection
     Dosage: 590 MILLIGRAM, QD
     Route: 055
     Dates: start: 20230515, end: 20230518
  2. ARIKAYCE [Suspect]
     Active Substance: AMIKACIN
     Route: 055
     Dates: start: 2023, end: 20230621
  3. ARIKAYCE [Suspect]
     Active Substance: AMIKACIN
     Route: 055
     Dates: start: 2023
  4. ARIKAYCE [Suspect]
     Active Substance: AMIKACIN
     Dosage: 590 MILLIGRAM, BIW
     Route: 055
     Dates: start: 20240719
  5. ARIKAYCE [Suspect]
     Active Substance: AMIKACIN
     Route: 055
  6. ARIKAYCE [Suspect]
     Active Substance: AMIKACIN
     Dosage: UNK, BIW, ON MONDAYS AND FRIDAYS, ONLY HALF A VIAL
     Route: 055
     Dates: start: 2024

REACTIONS (10)
  - Death [Fatal]
  - Respiratory distress [Unknown]
  - Secretion discharge [Not Recovered/Not Resolved]
  - Drug resistance [Not Recovered/Not Resolved]
  - Diarrhoea [Not Recovered/Not Resolved]
  - Bronchospasm [Not Recovered/Not Resolved]
  - Cough [Unknown]
  - Illness [Unknown]
  - Dyspnoea [Not Recovered/Not Resolved]
  - Off label use [Unknown]

NARRATIVE: CASE EVENT DATE: 20230501
